FAERS Safety Report 5025585-6 (Version None)
Quarter: 2006Q2

REPORT INFORMATION
  Report Type: 
  Country: None (occurrence: None)
  Receive Date: 20060426
  Receipt Date: 20060117
  Transmission Date: 20061013
  Serious: Yes (Other)
  Sender: FDA-Public Use
  Company Number: 2006009353

PATIENT
  Age: 46 Year
  Sex: Female
  Weight: 63.9572 kg

DRUGS (9)
  1. LYRICA [Suspect]
     Indication: COMPLEX REGIONAL PAIN SYNDROME
     Dosage: 750 MG (2 IN 1 D), ORAL
     Route: 048
     Dates: start: 20051101, end: 20051201
  2. NEURONTIN [Suspect]
     Indication: COMPLEX REGIONAL PAIN SYNDROME
  3. PROTONIX [Concomitant]
  4. TRILEPTAL [Concomitant]
  5. LIPITOR [Concomitant]
  6. ZELNORM [Concomitant]
  7. K-DUR 10 [Concomitant]
  8. CARDIZEM CD [Concomitant]
  9. ACTOS [Concomitant]

REACTIONS (3)
  - COMPLEX REGIONAL PAIN SYNDROME [None]
  - DRUG ADMINISTRATION ERROR [None]
  - WEIGHT INCREASED [None]
